FAERS Safety Report 7987892-4 (Version None)
Quarter: 2011Q4

REPORT INFORMATION
  Report Type: 
  Country: None (occurrence: None)
  Receive Date: 20111216
  Receipt Date: 20101112
  Transmission Date: 20120403
  Serious: No
  Sender: FDA-Public Use
  Company Number: US-BRISTOL-MYERS SQUIBB COMPANY-15383615

PATIENT
  Age: 8 Year
  Sex: Male

DRUGS (4)
  1. ABILIFY [Suspect]
     Dosage: DECREASED TO 5MG
  2. TENEX [Concomitant]
  3. DEPAKOTE ER [Concomitant]
  4. STRATTERA [Concomitant]

REACTIONS (1)
  - PRIAPISM [None]
